FAERS Safety Report 21144983 (Version 1)
Quarter: 2022Q3

REPORT INFORMATION
  Report Type: Spontaneous
  Country: BE (occurrence: BE)
  Receive Date: 20220728
  Receipt Date: 20220728
  Transmission Date: 20221027
  Serious: Yes (Other)
  Sender: FDA-Public Use
  Company Number: BE-009507513-2207BEL002172

PATIENT

DRUGS (9)
  1. BEVACIZUMAB [Suspect]
     Active Substance: BEVACIZUMAB
     Indication: Malignant neoplasm progression
     Dosage: UNK
     Route: 065
     Dates: start: 202205
  2. BEVACIZUMAB [Suspect]
     Active Substance: BEVACIZUMAB
     Indication: Glioblastoma
  3. LOMUSTINE [Suspect]
     Active Substance: LOMUSTINE
     Indication: Glioblastoma
     Dosage: UNK (AFTER GAMMAKNIFE FOLLOWED BY ANOTHER COURSE OF LOMUSTINE)
     Route: 065
     Dates: start: 202108
  4. LOMUSTINE [Suspect]
     Active Substance: LOMUSTINE
     Indication: Malignant neoplasm progression
     Dosage: UNK(1 COURSE OF LOMUSTINE)
     Route: 065
     Dates: start: 2021
  5. CARBOPLATIN [Suspect]
     Active Substance: CARBOPLATIN
     Indication: Glioblastoma
     Dosage: UNK
     Route: 065
     Dates: start: 202111
  6. CARBOPLATIN [Suspect]
     Active Substance: CARBOPLATIN
     Indication: Malignant neoplasm progression
  7. TEMOZOLOMIDE [Suspect]
     Active Substance: TEMOZOLOMIDE
     Indication: Glioblastoma
     Dosage: UNK(RESTART TEMOZOLOMIDE AFTER 16 MONTHS^ STOP, 6 ADDITIONAL TEMOZOLOMIDE COURSES)
     Route: 048
     Dates: start: 202102
  8. TEMOZOLOMIDE [Suspect]
     Active Substance: TEMOZOLOMIDE
     Dosage: UNK(6 COURSES TEMOZOLOMIDE AS MONOTHERAPY.)
     Route: 048
     Dates: start: 201903, end: 2019
  9. TEMOZOLOMIDE [Suspect]
     Active Substance: TEMOZOLOMIDE
     Dosage: UNK
     Route: 048
     Dates: end: 201903

REACTIONS (2)
  - Glioblastoma [Unknown]
  - Radiation necrosis [Unknown]

NARRATIVE: CASE EVENT DATE: 20210801
